FAERS Safety Report 6812232-3 (Version None)
Quarter: 2010Q3

REPORT INFORMATION
  Report Type: 
  Country: None (occurrence: None)
  Receive Date: 20100701
  Receipt Date: 20100628
  Transmission Date: 20110219
  Serious: Yes (Other)
  Sender: FDA-Public Use
  Company Number: GB-ASTRAZENECA-2010SE30088

PATIENT
  Age: 4 Year
  Sex: Male
  Weight: 15 kg

DRUGS (6)
  1. PROPOFOL [Suspect]
     Indication: INDUCTION OF ANAESTHESIA
  2. ATRACURIUM [Suspect]
     Indication: ENDOTRACHEAL INTUBATION
  3. CLONIDINE [Suspect]
     Indication: EPIDURAL ANAESTHESIA
     Route: 008
  4. LEVOBUPIVACAINE [Suspect]
     Indication: EPIDURAL ANAESTHESIA
     Route: 008
  5. ACETAMINOPHEN [Suspect]
     Route: 042
  6. SEVOFLURANE [Suspect]
     Indication: MAINTENANCE OF ANAESTHESIA
     Route: 055

REACTIONS (2)
  - ISCHAEMIA [None]
  - PENILE VASCULAR DISORDER [None]
